FAERS Safety Report 10710304 (Version 6)
Quarter: 2015Q1

REPORT INFORMATION
  Report Type: Report from Study
  Country: US (occurrence: US)
  Receive Date: 20150114
  Receipt Date: 20150223
  Transmission Date: 20150721
  Serious: Yes (Hospitalization, Other)
  Sender: FDA-Public Use
  Company Number: US-ABBVIE-15K-163-1331230-00

PATIENT
  Age: 10 Year
  Sex: Male
  Weight: 33.6 kg

DRUGS (2)
  1. HUMIRA [Suspect]
     Active Substance: ADALIMUMAB
     Route: 065
     Dates: start: 20141021
  2. HUMIRA [Suspect]
     Active Substance: ADALIMUMAB
     Indication: CROHN^S DISEASE
     Route: 065
     Dates: start: 20131120, end: 20141021

REACTIONS (7)
  - Clostridium difficile infection [Recovered/Resolved]
  - Gait disturbance [Recovered/Resolved]
  - Anal fistula [Recovering/Resolving]
  - Anal fistula [Recovering/Resolving]
  - Impaired healing [Not Recovered/Not Resolved]
  - Perirectal abscess [Recovering/Resolving]
  - Fistula discharge [Not Recovered/Not Resolved]

NARRATIVE: CASE EVENT DATE: 201408
